FAERS Safety Report 5365949-4 (Version None)
Quarter: 2007Q2

REPORT INFORMATION
  Report Type: 
  Country: None (occurrence: None)
  Receive Date: 20070611
  Receipt Date: 20070313
  Transmission Date: 20071010
  Serious: Yes (Other)
  Sender: FDA-Public Use
  Company Number: USA-2007-0026766

PATIENT
  Age: 58 Year
  Sex: Female

DRUGS (5)
  1. OXYCONTIN [Suspect]
     Indication: CANCER PAIN
     Dosage: 80 MG, TID
  2. TRAMADOL HCL [Concomitant]
  3. FIORINAL W/CODEINE [Concomitant]
  4. OXYCODONE HCL [Concomitant]
  5. OXYDOSE [Concomitant]

REACTIONS (1)
  - DRUG ABUSER [None]
